FAERS Safety Report 26111929 (Version 1)
Quarter: 2025Q4

REPORT INFORMATION
  Report Type: Report from Study
  Country: EU (occurrence: EU)
  Receive Date: 20251202
  Receipt Date: 20251202
  Transmission Date: 20260118
  Serious: Yes (Other)
  Sender: MYLAN
  Company Number: EU-GSK-FR2024GSK134769

PATIENT
  Age: 77 Year
  Sex: Female

DRUGS (12)
  1. PACLITAXEL [Suspect]
     Active Substance: PACLITAXEL
     Indication: Endometrial cancer recurrent
     Dosage: 175 MILLIGRAM/SQ. METER
  2. PACLITAXEL [Suspect]
     Active Substance: PACLITAXEL
     Dosage: 175 MILLIGRAM/SQ. METER
     Route: 042
  3. PACLITAXEL [Suspect]
     Active Substance: PACLITAXEL
     Dosage: 175 MILLIGRAM/SQ. METER
     Route: 042
  4. PACLITAXEL [Suspect]
     Active Substance: PACLITAXEL
     Dosage: 175 MILLIGRAM/SQ. METER
  5. CARBOPLATIN [Suspect]
     Active Substance: CARBOPLATIN
     Indication: Endometrial cancer recurrent
     Dosage: UNK UNK, QMINUTE, 5 MG/ML/MIN
     Dates: start: 20231216
  6. CARBOPLATIN [Suspect]
     Active Substance: CARBOPLATIN
     Dosage: UNK UNK, QMINUTE, 5 MG/ML/MIN
     Route: 042
     Dates: start: 20231216
  7. CARBOPLATIN [Suspect]
     Active Substance: CARBOPLATIN
     Dosage: UNK UNK, QMINUTE, 5 MG/ML/MIN
     Route: 042
     Dates: start: 20231216
  8. CARBOPLATIN [Suspect]
     Active Substance: CARBOPLATIN
     Dosage: UNK UNK, QMINUTE, 5 MG/ML/MIN
     Dates: start: 20231216
  9. DOSTARLIMAB [Suspect]
     Active Substance: DOSTARLIMAB
     Indication: Endometrial cancer recurrent
     Dosage: 500 MILLIGRAM, Q3W
     Dates: start: 20231213, end: 20250513
  10. DOSTARLIMAB [Suspect]
     Active Substance: DOSTARLIMAB
     Dosage: 500 MILLIGRAM, Q3W
     Route: 042
     Dates: start: 20231213, end: 20250513
  11. DOSTARLIMAB [Suspect]
     Active Substance: DOSTARLIMAB
     Dosage: 500 MILLIGRAM, Q3W
     Route: 042
     Dates: start: 20231213, end: 20250513
  12. DOSTARLIMAB [Suspect]
     Active Substance: DOSTARLIMAB
     Dosage: 500 MILLIGRAM, Q3W
     Dates: start: 20231213, end: 20250513

REACTIONS (3)
  - Malignant neoplasm progression [Unknown]
  - Haematotoxicity [Unknown]
  - Pruritus [Not Recovered/Not Resolved]

NARRATIVE: CASE EVENT DATE: 20240101
